FAERS Safety Report 21031059 (Version 2)
Quarter: 2022Q3

REPORT INFORMATION
  Report Type: Spontaneous
  Country: US (occurrence: US)
  Receive Date: 20220701
  Receipt Date: 20220705
  Transmission Date: 20221027
  Serious: Yes (Hospitalization, Other)
  Sender: FDA-Public Use
  Company Number: None

PATIENT
  Age: 32 Year
  Sex: Female

DRUGS (31)
  1. HYDROCORTISONE [Suspect]
     Active Substance: HYDROCORTISONE
     Indication: Nervous system disorder
     Dosage: UNK (STOPDATE JUL 2020)
     Route: 065
  2. HYDROCORTISONE [Suspect]
     Active Substance: HYDROCORTISONE
     Dosage: UNK, CYCLICAL (EVERY TWO WEEKS FOR FIVE CYCLES) (STARTDATE JAN 2020 AND STOP DATE IN 2020)
     Route: 065
  3. METHOTREXATE [Suspect]
     Active Substance: METHOTREXATE
     Indication: Nervous system disorder prophylaxis
     Dosage: UNK, (START DATE APR 2019)
     Route: 037
  4. METHOTREXATE [Suspect]
     Active Substance: METHOTREXATE
     Indication: B precursor type acute leukaemia
     Dosage: UNK (HIGH DOSE) (START DATE JAN 2020)
     Route: 065
  5. METHOTREXATE [Suspect]
     Active Substance: METHOTREXATE
     Indication: Nervous system disorder
     Dosage: UNK, CYCLICAL(EVERY TWO WEEKS FOR FIVE CYCLES) (START DATE JAN 2020 AND STOP DATE IN 2020)
     Route: 037
  6. METHOTREXATE [Suspect]
     Active Substance: METHOTREXATE
     Indication: B precursor type acute leukaemia
     Dosage: UNK,(START DATE JUL 2020)
     Route: 037
  7. METHOTREXATE [Suspect]
     Active Substance: METHOTREXATE
     Dosage: UNK (START DATE IN AUG 2019 AND STOP DATE JAN 2020), AS A PART OF POMP REGIMEN
     Route: 065
  8. DEXAMETHASONE [Suspect]
     Active Substance: DEXAMETHASONE
     Indication: B precursor type acute leukaemia
     Dosage: UNK (STOP DATE IN JUL 2021)
     Route: 065
  9. DEXAMETHASONE [Suspect]
     Active Substance: DEXAMETHASONE
     Dosage: UNK, CYCLICAL (CYCLE 3 PART A WAS INTERRUPTED) (START DATE IN FEB 2021 AND STOP DATE MAY 2021), AS A
     Route: 065
  10. DEXAMETHASONE [Suspect]
     Active Substance: DEXAMETHASONE
     Dosage: UNK,CVAD (START DATE IN APR 2019 AND STOP DATE IN 2019), AS A PART OF HYPER CVAD
     Route: 065
  11. ETOPOSIDE [Suspect]
     Active Substance: ETOPOSIDE
     Indication: B precursor type acute leukaemia
     Dosage: UNK, CYCLICAL (ONE CYCLICAL) (START DATE IN JAN 2021 AND STOP DATE IN 2021)
     Route: 065
  12. PREDNISOLONE [Suspect]
     Active Substance: PREDNISOLONE
     Indication: B precursor type acute leukaemia
     Dosage: UNK,POMP (START DATE AUG 2019, STOP DATE JAN 2020)
     Route: 065
  13. ADRIAMYCIN [Suspect]
     Active Substance: DOXORUBICIN HYDROCHLORIDE
     Indication: B precursor type acute leukaemia
     Dosage: UNK,(CYCLE 3 PART A WAS INTERRUPTED),(START DATE IN FEB 2021 AND STOP DATE IN MAY 2021), AS A PART O
     Route: 065
  14. ADRIAMYCIN [Suspect]
     Active Substance: DOXORUBICIN HYDROCHLORIDE
     Dosage: UNK,(STOP DATE IN JUL 2021)
     Route: 065
  15. ADRIAMYCIN [Suspect]
     Active Substance: DOXORUBICIN HYDROCHLORIDE
     Dosage: UNK, (START DATE APR 2019 STOP DATE 2019),AS A PART OF HYPER-CVAD REGIMEN
     Route: 065
  16. MITOXANTRONE [Suspect]
     Active Substance: MITOXANTRONE HYDROCHLORIDE
     Indication: B precursor type acute leukaemia
     Dosage: UNK, CYCLICAL(ONE CYCLE) (START DATE JAN 2021,STOP DATE 2021)
     Route: 065
  17. VINCRISTINE SULFATE [Suspect]
     Active Substance: VINCRISTINE SULFATE
     Indication: B precursor type acute leukaemia
     Dosage: UNK, HYPER-CVAD (START DATE APR 2019, STOP DATE IN 2019)
     Route: 065
  18. VINCRISTINE SULFATE [Suspect]
     Active Substance: VINCRISTINE SULFATE
     Dosage: UNK,(STOP DATE JUL 2021)
     Route: 065
  19. VINCRISTINE SULFATE [Suspect]
     Active Substance: VINCRISTINE SULFATE
     Dosage: UNK, CYCLICAL(CYCLE 3 PART A WAS INTERRUPTED) (STRAT DATE FEB 2021,STOP DATE MAY 2021),HYPERCVADREGI
     Route: 065
  20. VINCRISTINE SULFATE [Suspect]
     Active Substance: VINCRISTINE SULFATE
     Dosage: UNK, POMP (START DATE AUG 2019, STOP DATE JAN 2020)
     Route: 065
  21. CYCLOPHOSPHAMIDE [Suspect]
     Active Substance: CYCLOPHOSPHAMIDE
     Indication: B precursor type acute leukaemia
     Dosage: UNK,(STOP DATE IN JUL 2021)
     Route: 065
  22. CYCLOPHOSPHAMIDE [Suspect]
     Active Substance: CYCLOPHOSPHAMIDE
     Dosage: UNK, CYCLICAL (CYCLE 3 PART A WAS INTERRUPTED),(START DATE FEB 2021 AND STOP DATE IN MAY 2021),PART
     Route: 065
  23. CYCLOPHOSPHAMIDE [Suspect]
     Active Substance: CYCLOPHOSPHAMIDE
     Dosage: UNK,AS A PART OF HYPER CVAD(START DATE IN APR 2019, STOP DATE IN 2019)
     Route: 065
  24. CYTARABINE [Suspect]
     Active Substance: CYTARABINE
     Indication: Nervous system disorder
     Dosage: UNK,ARA-C (START DATE IN JUL 2020)
     Route: 065
  25. CYTARABINE [Suspect]
     Active Substance: CYTARABINE
     Indication: Nervous system disorder
     Dosage: UNK, CYCLICAL(EVERY TWO WEEKS FOR FIVE CYCLES) (START DATE IN JAN 2020, STOP DATE IN 2020)
     Route: 065
  26. CYTARABINE [Suspect]
     Active Substance: CYTARABINE
     Dosage: UNK,(START DATE IN APR 2019)
     Route: 065
  27. DASATINIB [Suspect]
     Active Substance: DASATINIB
     Indication: B precursor type acute leukaemia
     Dosage: UNK,(START DATE 2019)
     Route: 065
  28. IFOSFAMIDE [Suspect]
     Active Substance: IFOSFAMIDE
     Indication: B precursor type acute leukaemia
     Dosage: UNK, CYCLICAL,(START DATE JAN 2021 AND STOP DATE IN 2021)
     Route: 065
  29. MERCAPTOPURINE [Suspect]
     Active Substance: MERCAPTOPURINE
     Indication: B precursor type acute leukaemia
     Dosage: UNK,POMP (START DATE AUG 2019 AND STOP DATE IN JAN 2020), AS A PART OF POMP REGIMEN
     Route: 065
  30. METHYLPREDNISOLONE [Suspect]
     Active Substance: METHYLPREDNISOLONE
     Indication: Bone marrow transplant
     Dosage: UNK,(START DATE ON JAN 2021)
     Route: 042
  31. ISONIAZID [Concomitant]
     Active Substance: ISONIAZID
     Indication: Tuberculosis
     Dosage: UNK
     Route: 065

REACTIONS (7)
  - Pulmonary oedema [Recovered/Resolved]
  - Pericardial effusion [Recovered/Resolved]
  - Acute respiratory failure [Recovered/Resolved]
  - Strongyloidiasis [Recovered/Resolved]
  - Appendicitis [Unknown]
  - Staphylococcal infection [Recovered/Resolved]
  - Off label use [Unknown]

NARRATIVE: CASE EVENT DATE: 20210501
